FAERS Safety Report 18667042 (Version 1)
Quarter: 2020Q4

REPORT INFORMATION
  Report Type: Report from Study
  Country: None (occurrence: US)
  Receive Date: 20201228
  Receipt Date: 20201228
  Transmission Date: 20210114
  Serious: Yes (Other)
  Sender: FDA-Public Use
  Company Number: US-ABBVIE-20K-163-3703990-00

PATIENT
  Age: 66 Year
  Sex: Female

DRUGS (1)
  1. CREON [Suspect]
     Active Substance: PANCRELIPASE AMYLASE\PANCRELIPASE LIPASE\PANCRELIPASE PROTEASE
     Indication: PANCREATIC CARCINOMA
     Route: 048

REACTIONS (6)
  - Tonsillectomy [Unknown]
  - Surgery [Unknown]
  - Asthenia [Unknown]
  - Rectal haemorrhage [Unknown]
  - Fatigue [Unknown]
  - Hysterectomy [Unknown]

NARRATIVE: CASE EVENT DATE: 1994
